FAERS Safety Report 16108687 (Version 1)
Quarter: 2019Q1

REPORT INFORMATION
  Report Type: Spontaneous
  Country: JP (occurrence: JP)
  Receive Date: 20190323
  Receipt Date: 20190323
  Transmission Date: 20190418
  Serious: Yes (Death, Other)
  Sender: FDA-Public Use
  Company Number: JP-ACCORD-114633

PATIENT
  Age: 74 Year
  Sex: Female

DRUGS (4)
  1. CISPLATIN. [Suspect]
     Active Substance: CISPLATIN
     Indication: ADENOCARCINOMA GASTRIC
     Dosage: ON DAY 8 EVERY 5 WEEKS
     Route: 042
  2. 5-CHLORO-2/4-DIHYDROXYPYRIDINE [Concomitant]
     Indication: ENZYME INHIBITION
  3. TS-1 [Suspect]
     Active Substance: GIMERACIL\OTERACIL\TEGAFUR
     Indication: ADENOCARCINOMA GASTRIC
  4. POTASSIUM OXONATE [Concomitant]
     Active Substance: OTERACIL POTASSIUM
     Indication: ENZYME INHIBITION
     Dosage: 40 MG/M2, TWICE A DAY, ON DAYS 1-21

REACTIONS (2)
  - Pneumonia aspiration [Fatal]
  - Ascites [Unknown]
